FAERS Safety Report 7958374-0 (Version None)
Quarter: 2011Q4

REPORT INFORMATION
  Report Type: 
  Country: None (occurrence: None)
  Receive Date: 20111205
  Receipt Date: 20111125
  Transmission Date: 20120403
  Serious: Yes (Hospitalization)
  Sender: FDA-Public Use
  Company Number: JP-AMGEN-JPNCT2011064224

PATIENT
  Age: 76 Year
  Sex: Male

DRUGS (11)
  1. LANSOPRAZOLE [Concomitant]
     Dosage: UNK
     Route: 048
  2. HARNAL D [Concomitant]
     Dosage: UNK
     Route: 048
  3. PLAVIX [Concomitant]
     Dosage: UNK
     Route: 048
  4. FLOMOX [Concomitant]
     Dosage: UNK
     Route: 048
  5. DAIKENTYUTO [Concomitant]
     Dosage: UNK
     Route: 048
  6. JANUVIA [Concomitant]
     Dosage: UNK
     Route: 048
  7. CLARITHROMYCIN [Concomitant]
     Dosage: UNK
     Route: 048
  8. OXYCONTIN [Concomitant]
     Dosage: UNK
     Route: 048
  9. NORVASC [Concomitant]
     Dosage: UNK
     Route: 048
  10. PANITUMUMAB [Suspect]
     Indication: COLORECTAL CANCER
     Dosage: 300 MG, Q2WK
     Route: 041
     Dates: start: 20111021
  11. MUCOSIL-10 [Concomitant]
     Dosage: UNK
     Route: 048

REACTIONS (1)
  - HEPATIC FUNCTION ABNORMAL [None]
